FAERS Safety Report 6909549-0 (Version None)
Quarter: 2010Q3

REPORT INFORMATION
  Report Type: 
  Country: None (occurrence: None)
  Receive Date: 20100805
  Receipt Date: 20100730
  Transmission Date: 20110219
  Serious: Yes (Life-Threatening, Hospitalization)
  Sender: FDA-Public Use
  Company Number: JP-ABBOTT-10P-087-0650407-00

PATIENT
  Age: 53 Year
  Sex: Female
  Weight: 69.8 kg

DRUGS (1)
  1. LEUPLIN FOR INJECTION KIT1.88 MG [Suspect]
     Indication: MENORRHAGIA
     Route: 058
     Dates: start: 20100427, end: 20100427

REACTIONS (10)
  - GASTROINTESTINAL NECROSIS [None]
  - HEPATOMEGALY [None]
  - ILEUS [None]
  - MESENTERIC VEIN THROMBOSIS [None]
  - PELVIC VENOUS THROMBOSIS [None]
  - PORTAL VEIN THROMBOSIS [None]
  - SPLENIC INFARCTION [None]
  - SPLENIC VEIN THROMBOSIS [None]
  - SPLENOMEGALY [None]
  - VENOUS THROMBOSIS LIMB [None]
